FAERS Safety Report 17031101 (Version 3)
Quarter: 2020Q1

REPORT INFORMATION
  Report Type: Report from Study
  Country: US (occurrence: US)
  Receive Date: 20191114
  Receipt Date: 20200302
  Transmission Date: 20200409
  Serious: Yes (Hospitalization)
  Sender: FDA-Public Use
  Company Number: US-KYOWAKIRIN-2019BKK017552

PATIENT

DRUGS (3)
  1. NOURIANZ [Suspect]
     Active Substance: ISTRADEFYLLINE
     Indication: PARKINSON^S DISEASE
     Dosage: 20 MG DAILY
     Route: 048
     Dates: start: 20191101, end: 201911
  2. NOURIANZ [Suspect]
     Active Substance: ISTRADEFYLLINE
     Dosage: UNKNOWN
     Route: 065
     Dates: end: 2020
  3. NOURIANZ [Suspect]
     Active Substance: ISTRADEFYLLINE
     Dosage: HALF A PILL
     Route: 065
     Dates: start: 202002

REACTIONS (5)
  - Loss of consciousness [Not Recovered/Not Resolved]
  - Orthostatic hypotension [Not Recovered/Not Resolved]
  - Nausea [Recovered/Resolved]
  - Dizziness [Not Recovered/Not Resolved]
  - Wrong technique in product usage process [Not Recovered/Not Resolved]

NARRATIVE: CASE EVENT DATE: 201911
